FAERS Safety Report 9038769 (Version 1)
Quarter: 2013Q1

REPORT INFORMATION
  Report Type: Spontaneous
  Country: US (occurrence: None)
  Receive Date: 20130123
  Receipt Date: 20130123
  Transmission Date: 20140127
  Serious: Yes (Other)
  Sender: FDA-Public Use
  Company Number: None

PATIENT
  Age: 48 Year
  Sex: Male
  Weight: 104.33 kg

DRUGS (1)
  1. SUMATRIPTAN 100MG WATS-COBALT LABORATORIES [Suspect]
     Indication: MIGRAINE
     Route: 048

REACTIONS (2)
  - Nausea [None]
  - Vomiting [None]
